FAERS Safety Report 7055584-4 (Version None)
Quarter: 2010Q4

REPORT INFORMATION
  Report Type: 
  Country: None (occurrence: None)
  Receive Date: 20101021
  Receipt Date: 20101011
  Transmission Date: 20110411
  Serious: Yes (Other)
  Sender: FDA-Public Use
  Company Number: PHHO2010AR13233

PATIENT
  Sex: Male
  Weight: 68 kg

DRUGS (5)
  1. ALISKIREN/AMOLODIPINE BESYLATE/HYDROCHLOROTHIAZIDE [Suspect]
     Dosage: 150 MG DAILY
     Route: 048
     Dates: start: 20100430
  2. CARVEDIL [Concomitant]
     Indication: HYPERTENSION
     Dosage: UNK
     Dates: start: 20080101
  3. CARVEDIL [Concomitant]
     Indication: ATRIAL FIBRILLATION
  4. ENALAPRIL MALEATE [Concomitant]
     Dosage: 10 MG(3 TABLETS DAILY), 30 MG DAILY
  5. HYDROCHLOROTHIAZIDE [Concomitant]

REACTIONS (3)
  - ERYTHEMA [None]
  - RASH [None]
  - ROSACEA [None]
